FAERS Safety Report 6291147-6 (Version None)
Quarter: 2009Q3

REPORT INFORMATION
  Report Type: 
  Country: None (occurrence: None)
  Receive Date: 20090730
  Receipt Date: 20090724
  Transmission Date: 20100115
  Serious: Yes (Other)
  Sender: FDA-Public Use
  Company Number: B0533991A

PATIENT
  Sex: Female
  Weight: 67 kg

DRUGS (5)
  1. LAPATINIB [Suspect]
     Indication: BREAST CANCER
     Dosage: 1500MGD PER DAY
     Route: 048
     Dates: start: 20080716
  2. PACLITAXEL [Suspect]
     Indication: BREAST CANCER
     Dosage: 80MGM2 PER DAY
     Route: 042
     Dates: start: 20080716
  3. ATORVASTATIN [Concomitant]
     Indication: HYPERCHOLESTEROLAEMIA
     Dosage: 40MG PER DAY
     Route: 048
     Dates: start: 20080418
  4. CHOLESTYRAMINE [Concomitant]
     Indication: DIARRHOEA
     Dosage: 4G FOUR TIMES PER DAY
     Route: 048
     Dates: start: 20080820
  5. CYCLONIUM IODIDE [Concomitant]
     Indication: DIARRHOEA
     Dosage: 10MG TWICE PER DAY
     Route: 048
     Dates: start: 20080820

REACTIONS (4)
  - BAND NEUTROPHIL PERCENTAGE INCREASED [None]
  - LYMPHOCYTE PERCENTAGE INCREASED [None]
  - NEUTROPENIA [None]
  - WHITE BLOOD CELL COUNT DECREASED [None]
